FAERS Safety Report 6765097-2 (Version None)
Quarter: 2010Q2

REPORT INFORMATION
  Report Type: 
  Country: None (occurrence: None)
  Receive Date: 20100609
  Receipt Date: 20100609
  Transmission Date: 20101027
  Serious: Yes (Disabling)
  Sender: FDA-Public Use
  Company Number: None

PATIENT
  Age: 66 Year
  Sex: Male
  Weight: 76.2043 kg

DRUGS (2)
  1. OXALIPLATIN [Suspect]
     Indication: OESOPHAGEAL CARCINOMA
     Dosage: 145MG DAYS 1, 16, 22, 29 IV DRIP
     Route: 041
     Dates: start: 20100517, end: 20100608
  2. TAXOTERE [Suspect]
     Indication: OESOPHAGEAL CARCINOMA
     Dosage: 69MG DAYS1, 16, 22, 29 IV DRIP
     Route: 041
     Dates: start: 20100517, end: 20100608

REACTIONS (5)
  - DIZZINESS POSTURAL [None]
  - ERYTHEMA [None]
  - EYE IRRITATION [None]
  - HEART RATE INCREASED [None]
  - LACRIMATION INCREASED [None]
